FAERS Safety Report 5628161-7 (Version None)
Quarter: 2008Q1

REPORT INFORMATION
  Report Type: 
  Country: None (occurrence: None)
  Receive Date: 20080215
  Receipt Date: 20080205
  Transmission Date: 20080703
  Serious: Yes (Other)
  Sender: FDA-Public Use
  Company Number: US-JNJFOC-20080201344

PATIENT
  Sex: Female
  Weight: 90.72 kg

DRUGS (2)
  1. TOPAMAX [Suspect]
     Indication: MIGRAINE PROPHYLAXIS
     Route: 048
  2. CONTRACEPTIVE [Concomitant]

REACTIONS (7)
  - DIZZINESS [None]
  - EATING DISORDER [None]
  - LOSS OF CONSCIOUSNESS [None]
  - MIGRAINE [None]
  - NIGHTMARE [None]
  - TREMOR [None]
  - WEIGHT DECREASED [None]
